FAERS Safety Report 9435274 (Version 1)
Quarter: 2013Q3

REPORT INFORMATION
  Report Type: Spontaneous
  Country: US (occurrence: US)
  Receive Date: 20130801
  Receipt Date: 20130801
  Transmission Date: 20140515
  Serious: No
  Sender: FDA-Public Use
  Company Number: US-BAUSCH-BL-2013-003819

PATIENT
  Age: 83 Year
  Sex: Female
  Weight: 56.75 kg

DRUGS (3)
  1. LOTEPREDNOL ETABONATE OPHTHALMIC OINTMENT 0.5% [Suspect]
     Indication: PRODUCT USED FOR UNKNOWN INDICATION
     Dosage: 1 RIBBON; 4 TIMES DAILY; OPHTHALMIC
     Route: 047
     Dates: start: 20130617, end: 20130617
  2. LEVOTHYROXINE [Concomitant]
     Indication: HYPOTHYROIDISM
  3. TIMOLOL [Concomitant]
     Indication: GLAUCOMA

REACTIONS (2)
  - Vision blurred [Recovered/Resolved]
  - Eye irritation [Recovered/Resolved]
